FAERS Safety Report 14867492 (Version 1)
Quarter: 2018Q2

REPORT INFORMATION
  Report Type: Report from Study
  Country: US (occurrence: US)
  Receive Date: 20180508
  Receipt Date: 20180508
  Transmission Date: 20180711
  Serious: Yes (Hospitalization, Other)
  Sender: FDA-Public Use
  Company Number: US-ALKERMES INC.-ALK-2018-001935

PATIENT
  Age: 25 Year
  Sex: Male

DRUGS (1)
  1. VIVITROL [Suspect]
     Active Substance: NALTREXONE
     Indication: DRUG DEPENDENCE
     Dosage: 380 MG, QMO
     Route: 030
     Dates: start: 20180123

REACTIONS (16)
  - Mental status changes [Unknown]
  - Abdominal injury [Unknown]
  - Acute kidney injury [Unknown]
  - Agitation [Unknown]
  - Headache [Unknown]
  - Tachycardia [Unknown]
  - Spinal pain [Unknown]
  - Abdominal pain [Unknown]
  - Chest pain [Unknown]
  - Rhabdomyolysis [Not Recovered/Not Resolved]
  - Laceration [Unknown]
  - Pain [Unknown]
  - Head injury [Unknown]
  - Skin abrasion [Unknown]
  - Drug abuse [Unknown]
  - Back pain [Unknown]

NARRATIVE: CASE EVENT DATE: 20180222
